FAERS Safety Report 4907356-1 (Version None)
Quarter: 2006Q1

REPORT INFORMATION
  Report Type: 
  Country: None (occurrence: None)
  Receive Date: 20060208
  Receipt Date: 20060208
  Transmission Date: 20060701
  Serious: Yes (Hospitalization)
  Sender: FDA-Public Use
  Company Number: None

PATIENT
  Age: 50 Year
  Sex: Male

DRUGS (4)
  1. LISINOPRIL [Suspect]
     Indication: HYPERTENSION
     Dosage: 10MG PO QD
     Route: 048
     Dates: start: 20051227, end: 20051228
  2. HYDROCHLOROTHIAZIDE [Concomitant]
  3. ADALAT CC [Concomitant]
  4. PREDNISONE [Concomitant]

REACTIONS (1)
  - ANGIONEUROTIC OEDEMA [None]
